FAERS Safety Report 17542636 (Version 1)
Quarter: 2020Q1

REPORT INFORMATION
  Report Type: Spontaneous
  Country: FR (occurrence: FR)
  Receive Date: 20200315
  Receipt Date: 20200315
  Transmission Date: 20200409
  Serious: Yes (Hospitalization)
  Sender: FDA-Public Use
  Company Number: FR-ZYDUS-048769

PATIENT
  Age: 52 Year
  Sex: Male
  Weight: 70 kg

DRUGS (3)
  1. CEFEPIME [Suspect]
     Active Substance: CEFEPIME HYDROCHLORIDE
     Indication: PNEUMONIA
     Route: 041
     Dates: start: 20200123, end: 20200130
  2. ENOXAPARIN [Suspect]
     Active Substance: ENOXAPARIN
     Indication: PRODUCT USED FOR UNKNOWN INDICATION
     Route: 058
     Dates: start: 20200124
  3. LANSOPRAZOLE. [Suspect]
     Active Substance: LANSOPRAZOLE
     Indication: GASTROOESOPHAGEAL REFLUX DISEASE
     Route: 048
     Dates: start: 20200119, end: 20200127

REACTIONS (3)
  - Thrombocytopenia [Recovered/Resolved]
  - Cholestasis [Not Recovered/Not Resolved]
  - Cell death [Recovering/Resolving]

NARRATIVE: CASE EVENT DATE: 20200123
